FAERS Safety Report 19467128 (Version 3)
Quarter: 2021Q3

REPORT INFORMATION
  Report Type: Other
  Country: BR (occurrence: BR)
  Receive Date: 20210628
  Receipt Date: 20210714
  Transmission Date: 20211014
  Serious: Yes (Other)
  Sender: FDA-Public Use
  Company Number: BR-ROCHE-2856066

PATIENT
  Age: 43 Year
  Sex: Female

DRUGS (2)
  1. OCREVUS [Suspect]
     Active Substance: OCRELIZUMAB
     Indication: MULTIPLE SCLEROSIS
     Route: 042
     Dates: start: 201906
  2. ZOLPIDEM [Concomitant]
     Active Substance: ZOLPIDEM TARTRATE
     Dosage: SLEEP INDUCTION

REACTIONS (7)
  - Dizziness [Recovered/Resolved]
  - Dysphagia [Recovered/Resolved]
  - Tremor [Recovered/Resolved]
  - Dry throat [Recovered/Resolved]
  - Infusion related reaction [Recovered/Resolved]
  - Heart rate increased [Recovered/Resolved]
  - Feeling cold [Recovered/Resolved]

NARRATIVE: CASE EVENT DATE: 20210103
